FAERS Safety Report 5586075-5 (Version None)
Quarter: 2008Q1

REPORT INFORMATION
  Report Type: 
  Country: None (occurrence: None)
  Receive Date: 20080107
  Receipt Date: 20071221
  Transmission Date: 20080703
  Serious: Yes (Congenital Anomaly)
  Sender: FDA-Public Use
  Company Number: 8024568

PATIENT
  Age: 28 Year
  Sex: Female

DRUGS (5)
  1. KEPPRA [Suspect]
     Indication: EPILEPSY
     Dosage: 2000 MG/D
  2. KEPPRA [Suspect]
     Indication: EPILEPSY
     Dosage: 3000 MG/D
  3. PRENATAL VITAMINS [Concomitant]
  4. FOLIC ACID [Concomitant]
  5. VALTREX [Concomitant]

REACTIONS (2)
  - DRUG EXPOSURE DURING PREGNANCY [None]
  - PREGNANCY [None]
